FAERS Safety Report 24541350 (Version 1)
Quarter: 2024Q4

REPORT INFORMATION
  Report Type: Spontaneous
  Country: US (occurrence: US)
  Receive Date: 20241023
  Receipt Date: 20241023
  Transmission Date: 20250115
  Serious: No
  Sender: MARINUS PHARMACEUTICALS
  Company Number: US-MARINUS PHARMACEUTICALS, INC.-MAR2024000205

PATIENT
  Sex: Male

DRUGS (4)
  1. ZTALMY [Suspect]
     Active Substance: GANAXOLONE
     Indication: Product used for unknown indication
     Dosage: 3 MILLILITER, TID, WEEK ONE
     Route: 048
  2. ZTALMY [Suspect]
     Active Substance: GANAXOLONE
     Dosage: 6 MILLILITER, TID, WEEK TWO
     Route: 048
  3. ZTALMY [Suspect]
     Active Substance: GANAXOLONE
     Dosage: 9 MILLILITER, TID, WEEK THREE
     Route: 048
  4. ZTALMY [Suspect]
     Active Substance: GANAXOLONE
     Dosage: 12 MILLILITER, TID, WEEK FOUR
     Route: 048

REACTIONS (1)
  - Drug intolerance [Unknown]

NARRATIVE: CASE EVENT DATE: 20240101
